FAERS Safety Report 8010491-5 (Version None)
Quarter: 2011Q4

REPORT INFORMATION
  Report Type: 
  Country: None (occurrence: None)
  Receive Date: 20111228
  Receipt Date: 20111219
  Transmission Date: 20120403
  Serious: Yes (Hospitalization, Other)
  Sender: FDA-Public Use
  Company Number: JP-MPIJNJ-2011-06531

PATIENT

DRUGS (10)
  1. LIDOMEX [Concomitant]
     Dosage: UNK
     Route: 062
  2. PANOBINOSTAT [Suspect]
     Indication: MULTIPLE MYELOMA
     Dosage: UNK
     Dates: start: 20111107, end: 20111118
  3. DEXAMETHASONE [Suspect]
     Dosage: UNK
     Route: 048
     Dates: start: 20011107, end: 20111118
  4. SENNOSIDE                          /00571902/ [Concomitant]
     Dosage: 12 MG, UNK
     Route: 048
     Dates: start: 20111120
  5. URSO                               /00465701/ [Concomitant]
     Dosage: 100 MG, UNK
     Route: 048
     Dates: start: 20111114
  6. ACTONEL [Concomitant]
     Dosage: 17.5 MG, UNK
     Route: 048
     Dates: start: 20110830
  7. VELCADE [Suspect]
     Indication: MULTIPLE MYELOMA
     Dosage: UNK
     Dates: start: 20111107, end: 20111108
  8. OMEPRAZOLE [Concomitant]
     Dosage: 20 MG, UNK
     Route: 048
     Dates: start: 20111107
  9. SORENTMIN [Concomitant]
     Dosage: 0.25 MG, UNK
     Route: 048
     Dates: start: 20110922
  10. ACYCLOVIR [Concomitant]
     Dosage: 200 MG, UNK
     Route: 048
     Dates: start: 20111107

REACTIONS (4)
  - PLATELET COUNT DECREASED [None]
  - PYREXIA [None]
  - RASH [None]
  - PHARYNGITIS [None]
